FAERS Safety Report 9708311 (Version 1)
Quarter: 2013Q4

REPORT INFORMATION
  Report Type: Spontaneous
  Country: AU (occurrence: AU)
  Receive Date: 20131125
  Receipt Date: 20131125
  Transmission Date: 20140711
  Serious: Yes (Other)
  Sender: FDA-Public Use
  Company Number: AU-PFIZER INC-2013333179

PATIENT
  Age: 3 Decade
  Sex: Male

DRUGS (1)
  1. RELPAX [Suspect]
     Indication: MIGRAINE
     Dosage: UNK

REACTIONS (2)
  - Intentional drug misuse [Unknown]
  - Haemoptysis [Unknown]
